FAERS Safety Report 10052587 (Version 1)
Quarter: 2014Q1

REPORT INFORMATION
  Report Type: Spontaneous
  Country: US (occurrence: None)
  Receive Date: 20140331
  Receipt Date: 20140331
  Transmission Date: 20141002
  Serious: Yes (Hospitalization)
  Sender: FDA-Public Use
  Company Number: UTC-044547

PATIENT
  Age: 72 Year
  Sex: Female
  Weight: 47.63 kg

DRUGS (1)
  1. REMODULIN [Suspect]
     Indication: COR PULMONALE CHRONIC
     Dosage: 117 UG/KG (0.08125 UG/KG, 1 IN 1 MIN), INTRAVENOUS DRIP?
     Route: 041
     Dates: start: 20120301

REACTIONS (1)
  - Dyspnoea [None]
